FAERS Safety Report 8319922-4 (Version None)
Quarter: 2012Q2

REPORT INFORMATION
  Report Type: 
  Country: None (occurrence: None)
  Receive Date: 20120427
  Receipt Date: 20120416
  Transmission Date: 20120825
  Serious: Yes (Other)
  Sender: FDA-Public Use
  Company Number: DE-B.I. PHARMACEUTICALS,INC./RIDGEFIELD-2012-DE-01014DE

PATIENT
  Age: 73 Year
  Sex: Male

DRUGS (4)
  1. PRAMIPEXOLE DIHYCHLLORIDE [Suspect]
     Indication: PARKINSON'S DISEASE
     Dosage: 2.1 MG
  2. AZILECT [Concomitant]
  3. STALEWO [Concomitant]
  4. PK-MERZ [Concomitant]

REACTIONS (2)
  - HYPERSEXUALITY [None]
  - BULIMIA NERVOSA [None]
